FAERS Safety Report 9265981 (Version 3)
Quarter: 2014Q2

REPORT INFORMATION
  Report Type: Spontaneous
  Country: US (occurrence: US)
  Receive Date: 20130501
  Receipt Date: 20140527
  Transmission Date: 20141212
  Serious: Yes (Hospitalization)
  Sender: FDA-Public Use
  Company Number: US-B.I. PHARMACEUTICALS,INC./RIDGEFIELD-2013-BI-11933BP

PATIENT
  Age: 86 Year
  Sex: Female
  Weight: 56.7 kg

DRUGS (14)
  1. PRADAXA [Suspect]
     Indication: ATRIAL FIBRILLATION
     Dosage: 300 MG
     Route: 048
     Dates: start: 20120314, end: 20120704
  2. XANAX [Concomitant]
     Indication: BACK PAIN
     Dosage: 2 MG
     Route: 048
  3. POTASSIUM [Concomitant]
     Dosage: 10 MEQ
     Route: 048
  4. ASPIRIN [Concomitant]
     Dosage: 81 MG
     Route: 048
  5. LYRICA [Concomitant]
     Dosage: 75 MG
     Route: 048
  6. CALCIUM D [Concomitant]
     Dosage: 1200 MG
     Route: 048
  7. MVI [Concomitant]
     Route: 048
  8. BENADRYL [Concomitant]
     Route: 048
  9. OCUVITE [Concomitant]
     Route: 048
  10. LORTAB [Concomitant]
     Route: 048
  11. METOPROLOL [Concomitant]
     Dosage: 25 MG
     Route: 065
  12. ANTIVERT [Concomitant]
     Route: 065
  13. HYDROCODONE/ACETAMINOPHEN [Concomitant]
     Route: 065
  14. VITAMIN D3 [Concomitant]
     Route: 065

REACTIONS (2)
  - Haemorrhagic stroke [Not Recovered/Not Resolved]
  - Gastrointestinal haemorrhage [Unknown]
